FAERS Safety Report 12614467 (Version 1)
Quarter: 2016Q3

REPORT INFORMATION
  Report Type: Spontaneous
  Country: US (occurrence: None)
  Receive Date: 20160801
  Receipt Date: 20160801
  Transmission Date: 20161109
  Serious: No
  Sender: FDA-Public Use
  Company Number: None

PATIENT
  Sex: Male

DRUGS (2)
  1. GUANFACINE ER [Concomitant]
     Active Substance: GUANFACINE
  2. METHYLPHENIDATE ER 36MG [Suspect]
     Active Substance: METHYLPHENIDATE
     Indication: ATTENTION DEFICIT/HYPERACTIVITY DISORDER
     Dosage: ILLEGIBLE

REACTIONS (3)
  - Agitation [None]
  - Disturbance in attention [None]
  - Aggression [None]
